FAERS Safety Report 9887587 (Version 1)
Quarter: 2013Q4

REPORT INFORMATION
  Report Type: Spontaneous
  Country: US (occurrence: None)
  Receive Date: 20131223
  Receipt Date: 20131223
  Transmission Date: 20140711
  Serious: No
  Sender: FDA-Public Use
  Company Number: 220453LEO

PATIENT
  Age: 65 Year
  Sex: Female

DRUGS (3)
  1. PICATO (0.05%, GEL) [Suspect]
     Indication: ACTINIC KERATOSIS
     Dosage: 1 IN 1 D TOPICAL
     Dates: start: 20130107, end: 20130108
  2. METFORMIN (METFORMIN) [Concomitant]
  3. HYZAAR (HYZAAR) [Concomitant]

REACTIONS (3)
  - Drug ineffective [None]
  - Application site erythema [None]
  - Drug administered at inappropriate site [None]
